FAERS Safety Report 4963544-X (Version None)
Quarter: 2006Q1

REPORT INFORMATION
  Report Type: 
  Country: None (occurrence: None)
  Receive Date: 20060330
  Receipt Date: 20060314
  Transmission Date: 20060701
  Serious: Yes (Hospitalization)
  Sender: FDA-Public Use
  Company Number: DSA_27788_2006

PATIENT
  Age: 56 Year
  Sex: Male
  Weight: 47 kg

DRUGS (10)
  1. RENIVACE [Suspect]
     Indication: GLOMERULONEPHRITIS MEMBRANOUS
     Dosage: 1 DF Q DAY PO
     Route: 048
     Dates: start: 20051228, end: 20060130
  2. BREDININ [Concomitant]
  3. SYNTHEPEN [Concomitant]
  4. GASTER [Concomitant]
  5. GASLON N [Concomitant]
  6. GLYCYRON [Concomitant]
  7. ASPARA K [Concomitant]
  8. PERSANTIN [Concomitant]
  9. MEDROL [Concomitant]
  10. SOLU-MEDROL [Concomitant]

REACTIONS (20)
  - ASPARTATE AMINOTRANSFERASE DECREASED [None]
  - BLOOD CHLORIDE DECREASED [None]
  - BLOOD CHOLESTEROL INCREASED [None]
  - BLOOD CREATININE DECREASED [None]
  - BLOOD LACTATE DEHYDROGENASE INCREASED [None]
  - BLOOD POTASSIUM DECREASED [None]
  - BLOOD PRESSURE DIASTOLIC DECREASED [None]
  - BLOOD SODIUM DECREASED [None]
  - BLOOD URINE PRESENT [None]
  - EOSINOPHIL PERCENTAGE DECREASED [None]
  - HAEMATOCRIT DECREASED [None]
  - HAEMOGLOBIN DECREASED [None]
  - LYMPHOCYTE PERCENTAGE DECREASED [None]
  - MONOCYTE PERCENTAGE INCREASED [None]
  - NEUTROPHIL PERCENTAGE INCREASED [None]
  - PROTEIN TOTAL DECREASED [None]
  - PROTEIN URINE PRESENT [None]
  - RED BLOOD CELL COUNT DECREASED [None]
  - TOXIC EPIDERMAL NECROLYSIS [None]
  - WHITE BLOOD CELL COUNT INCREASED [None]
